FAERS Safety Report 25299241 (Version 1)
Quarter: 2025Q2

REPORT INFORMATION
  Report Type: Spontaneous
  Country: US (occurrence: US)
  Receive Date: 20250512
  Receipt Date: 20250512
  Transmission Date: 20250717
  Serious: Yes (Other)
  Sender: NOVO NORDISK
  Company Number: US-NOVOPROD-1425165

PATIENT
  Sex: Male

DRUGS (3)
  1. NOVOLOG [Suspect]
     Active Substance: INSULIN ASPART
     Indication: Product used for unknown indication
  2. NOVOLOG [Suspect]
     Active Substance: INSULIN ASPART
  3. TRESIBA [Suspect]
     Active Substance: INSULIN DEGLUDEC
     Indication: Product used for unknown indication
     Dosage: 45 IU, QD

REACTIONS (3)
  - Cerebrovascular accident [Recovering/Resolving]
  - Visual impairment [Recovering/Resolving]
  - Glycosylated haemoglobin increased [Not Recovered/Not Resolved]
